FAERS Safety Report 12624733 (Version 1)
Quarter: 2016Q3

REPORT INFORMATION
  Report Type: Spontaneous
  Country: US (occurrence: None)
  Receive Date: 20160804
  Receipt Date: 20160804
  Transmission Date: 20161109
  Serious: Yes (Hospitalization)
  Sender: FDA-Public Use
  Company Number: None

PATIENT
  Age: 30 Year
  Sex: Male
  Weight: 101.61 kg

DRUGS (3)
  1. SULFAMETH\TMP [Suspect]
     Active Substance: SULFAMETHOXAZOLE\TRIMETHOPRIM
     Indication: PILONIDAL CYST
     Dosage: 14 TABLET(S) TWICE A DAY TAKEN BY MOUTH
     Route: 048
  2. OMEPRAZOLE. [Concomitant]
     Active Substance: OMEPRAZOLE
  3. RATINIDINE [Concomitant]

REACTIONS (5)
  - Dizziness [None]
  - Cold sweat [None]
  - Anxiety [None]
  - Chills [None]
  - Nausea [None]

NARRATIVE: CASE EVENT DATE: 20160724
